FAERS Safety Report 5095513-6 (Version None)
Quarter: 2006Q3

REPORT INFORMATION
  Report Type: 
  Country: None (occurrence: None)
  Receive Date: 20060831
  Receipt Date: 20060831
  Transmission Date: 20061208
  Serious: Yes (Hospitalization)
  Sender: FDA-Public Use
  Company Number: None

PATIENT
  Age: 41 Year
  Sex: Female
  Weight: 97.7955 kg

DRUGS (4)
  1. ADRIAMYCIN [Suspect]
     Indication: BREAST CANCER
     Dosage: 6 WKS AGO
  2. EFFEXOR [Concomitant]
  3. NORVASC [Concomitant]
  4. ALBUTEROL [Concomitant]

REACTIONS (5)
  - ASTHMA [None]
  - CARDIOMYOPATHY [None]
  - DRUG INEFFECTIVE [None]
  - PERICARDIAL EFFUSION [None]
  - PLEURAL EFFUSION [None]
